FAERS Safety Report 6244773-4 (Version None)
Quarter: 2009Q2

REPORT INFORMATION
  Report Type: 
  Country: None (occurrence: None)
  Receive Date: 20090623
  Receipt Date: 20090623
  Transmission Date: 20091009
  Serious: Yes (Disabling)
  Sender: FDA-Public Use
  Company Number: None

PATIENT

DRUGS (1)
  1. CITALOPRAM HYDROBROMIDE [Suspect]
     Indication: ANTIDEPRESSANT THERAPY
     Dosage: ONE TABLET ONCE A DAY PO
     Route: 048
     Dates: start: 20090505, end: 20090619

REACTIONS (5)
  - DRY MOUTH [None]
  - DRY SKIN [None]
  - FEAR [None]
  - PRODUCT SUBSTITUTION ISSUE [None]
  - STEVENS-JOHNSON SYNDROME [None]
